FAERS Safety Report 7129891-0 (Version None)
Quarter: 2010Q4

REPORT INFORMATION
  Report Type: 
  Country: None (occurrence: None)
  Receive Date: 20101130
  Receipt Date: 20101020
  Transmission Date: 20110411
  Serious: No
  Sender: FDA-Public Use
  Company Number: US-AMGEN-KDL444152

PATIENT

DRUGS (2)
  1. NPLATE [Suspect]
     Indication: IDIOPATHIC THROMBOCYTOPENIC PURPURA
     Dosage: 70 A?G, UNK
     Dates: start: 20100715, end: 20100730
  2. NPLATE [Suspect]
     Dates: start: 20100715, end: 20100730

REACTIONS (2)
  - HEADACHE [None]
  - MIGRAINE [None]
